FAERS Safety Report 26197239 (Version 1)
Quarter: 2025Q4

REPORT INFORMATION
  Report Type: Spontaneous
  Country: KR (occurrence: KR)
  Receive Date: 20251224
  Receipt Date: 20251224
  Transmission Date: 20260118
  Serious: Yes (Other)
  Sender: Kenvue
  Company Number: KR-KENVUE-20251207550

PATIENT
  Age: 4 Decade

DRUGS (5)
  1. TYLENOL 8HR [Suspect]
     Active Substance: ACETAMINOPHEN
     Indication: Sinusitis
     Dosage: 650 MILLIGRAM, ONCE A DAY (/ 1DAY)
     Route: 065
  2. REBAMIPIDE [Suspect]
     Active Substance: REBAMIPIDE
     Indication: Sinusitis
     Dosage: 100 MILLIGRAM, ONCE A DAY (/ 1DAY)
     Route: 065
  3. PSEUDOEPHEDRINE HYDROCHLORIDE [Suspect]
     Active Substance: PSEUDOEPHEDRINE HYDROCHLORIDE
     Indication: Sinusitis
     Dosage: 60 MILLIGRAM, ONCE A DAY ( / 1DAY)
     Route: 065
  4. METHYLPREDNISOLONE [Suspect]
     Active Substance: METHYLPREDNISOLONE
     Indication: Sinusitis
     Dosage: 4 MILLIGRAM, ONCE A DAY (/ 1DAY)
     Route: 065
  5. ACETYLCYSTEINE [Suspect]
     Active Substance: ACETYLCYSTEINE
     Indication: Sinusitis
     Dosage: 200 MILLIGRAM, ONCE A DAY (/ 1DAY)
     Route: 065

REACTIONS (4)
  - Vomiting [Recovered/Resolved]
  - Dyspnoea [Recovered/Resolved]
  - Rash [Recovered/Resolved]
  - Paraesthesia [Recovered/Resolved]
